FAERS Safety Report 12155707 (Version 2)
Quarter: 2016Q1

REPORT INFORMATION
  Report Type: Spontaneous
  Country: CN (occurrence: CN)
  Receive Date: 20160307
  Receipt Date: 20160316
  Transmission Date: 20160526
  Serious: Yes (Other)
  Sender: FDA-Public Use
  Company Number: CN-ASTRAZENECA-2016SE23176

PATIENT
  Age: 79 Year
  Sex: Male

DRUGS (3)
  1. FLUTAMIDE. [Concomitant]
     Active Substance: FLUTAMIDE
     Dates: end: 2014
  2. FELODIPINE. [Concomitant]
     Active Substance: FELODIPINE
     Indication: HYPERTENSION
     Route: 048
     Dates: start: 2007
  3. CASODEX [Suspect]
     Active Substance: BICALUTAMIDE
     Indication: PROSTATE CANCER
     Route: 048
     Dates: start: 2014

REACTIONS (3)
  - Malignant neoplasm progression [Unknown]
  - Prostatic specific antigen increased [None]
  - Blood glucose increased [Unknown]

NARRATIVE: CASE EVENT DATE: 2014
